FAERS Safety Report 5308074-0 (Version None)
Quarter: 2007Q2

REPORT INFORMATION
  Report Type: 
  Country: None (occurrence: None)
  Receive Date: 20070423
  Receipt Date: 20070423
  Transmission Date: 20071010
  Serious: Yes (Life-Threatening, Hospitalization)
  Sender: FDA-Public Use
  Company Number: None

PATIENT
  Age: 43 Year
  Sex: Male
  Weight: 79.4 kg

DRUGS (1)
  1. EPINEPHRINE [Suspect]
     Indication: STRIDOR
     Dosage: 0.3MG ONCE IM
     Route: 030
     Dates: start: 20070409, end: 20070409

REACTIONS (3)
  - CHEST PAIN [None]
  - VENTRICULAR TACHYCARDIA [None]
  - VOMITING [None]
